FAERS Safety Report 17350169 (Version 2)
Quarter: 2020Q2

REPORT INFORMATION
  Report Type: Report from Study
  Country: IT (occurrence: IT)
  Receive Date: 20200130
  Receipt Date: 20200522
  Transmission Date: 20200713
  Serious: Yes (Death, Hospitalization, Other)
  Sender: FDA-Public Use
  Company Number: IT-INCYTE CORPORATION-2018IN006952

PATIENT

DRUGS (11)
  1. DIBASE [Concomitant]
     Active Substance: CHOLECALCIFEROL
     Indication: PROPHYLAXIS
     Dosage: 25000 U, Q2W
     Route: 065
     Dates: start: 20151009, end: 20191205
  2. TRIATEC [RAMIPRIL] [Concomitant]
     Active Substance: RAMIPRIL
     Indication: CARDIAC DISORDER
     Dosage: 2.5 MG, QD
     Route: 065
     Dates: end: 20191205
  3. OMEPRAZOL [OMEPRAZOLE MAGNESIUM] [Concomitant]
     Indication: PROPHYLAXIS
     Dosage: 20 MG, QD
     Route: 065
     Dates: end: 20191205
  4. COUMADIN [Concomitant]
     Active Substance: WARFARIN SODIUM
     Indication: ANTICOAGULANT THERAPY
     Dosage: ACCORDING INR
     Route: 065
     Dates: start: 20181214, end: 20191205
  5. ZEFFIX [Concomitant]
     Active Substance: LAMIVUDINE
     Indication: PROPHYLAXIS
     Dosage: 100 MG, QD
     Route: 065
     Dates: start: 20170808, end: 20191205
  6. DELTACORTENE [Concomitant]
     Active Substance: PREDNISONE
     Indication: PAIN
     Dosage: 5 MG, QOD
     Route: 065
     Dates: start: 20190301, end: 20191205
  7. JAKAVI [Suspect]
     Active Substance: RUXOLITINIB
     Indication: MYELOFIBROSIS
     Dosage: 30 MG, (2 CP)
     Route: 048
     Dates: start: 20170806, end: 20180517
  8. ZYLORIC [Concomitant]
     Active Substance: ALLOPURINOL
     Indication: PROPHYLAXIS
     Dosage: 150 MG, QD
     Route: 065
     Dates: start: 20150906, end: 20191205
  9. BENEXOL B12 [CYANOCOBALAMIN;PYRIDOXINE HYDROCHLORIDE;THIAMINE HYDROCHL [Concomitant]
     Indication: PROPHYLAXIS
     Dosage: 1 FL, QW
     Route: 065
     Dates: start: 20180323, end: 20191205
  10. JAKAVI [Suspect]
     Active Substance: RUXOLITINIB
     Dosage: 20 MG
     Route: 048
     Dates: end: 20191205
  11. METOPROLOL. [Concomitant]
     Active Substance: METOPROLOL
     Indication: CARDIAC DISORDER
     Dosage: 25 MG, BID
     Route: 065
     Dates: end: 20191205

REACTIONS (12)
  - Haemoglobin decreased [Unknown]
  - Thrombosis [Recovered/Resolved]
  - Lung abscess [Recovered/Resolved]
  - Pulmonary embolism [Fatal]
  - Red blood cell count decreased [Unknown]
  - Pulmonary embolism [Recovered/Resolved]
  - Respiratory failure [Fatal]
  - Pulmonary embolism [Recovered/Resolved]
  - Blood creatinine increased [Unknown]
  - Pneumonia [Fatal]
  - Cardiac disorder [Unknown]
  - Blood lactate dehydrogenase increased [Unknown]

NARRATIVE: CASE EVENT DATE: 20170808
